FAERS Safety Report 20898238 (Version 1)
Quarter: 2022Q2

REPORT INFORMATION
  Report Type: Spontaneous
  Country: US (occurrence: None)
  Receive Date: 20220531
  Receipt Date: 20220531
  Transmission Date: 20220721
  Serious: Yes (Hospitalization)
  Sender: FDA-Public Use
  Company Number: 2022A197496

PATIENT
  Age: 31641 Day
  Sex: Female

DRUGS (2)
  1. FASLODEX [Suspect]
     Active Substance: FULVESTRANT
     Route: 030
     Dates: start: 2017, end: 2018
  2. FASLODEX [Suspect]
     Active Substance: FULVESTRANT
     Route: 030

REACTIONS (16)
  - Stress cardiomyopathy [Unknown]
  - Hypotension [Unknown]
  - Pneumonia [Unknown]
  - Taste disorder [Unknown]
  - Hypertension [Unknown]
  - Dizziness [Unknown]
  - Feeling abnormal [Unknown]
  - Photopsia [Unknown]
  - Motor dysfunction [Unknown]
  - Muscular weakness [Unknown]
  - Gait disturbance [Unknown]
  - Hypoaesthesia [Unknown]
  - Dyspnoea [Recovered/Resolved]
  - Oxygen saturation decreased [Recovered/Resolved]
  - Ejection fraction decreased [Unknown]
  - Pleural effusion [Unknown]

NARRATIVE: CASE EVENT DATE: 20220516
